FAERS Safety Report 5072705-3 (Version None)
Quarter: 2006Q3

REPORT INFORMATION
  Report Type: 
  Country: None (occurrence: None)
  Receive Date: 20060807
  Receipt Date: 20060725
  Transmission Date: 20061208
  Serious: Yes (Hospitalization)
  Sender: FDA-Public Use
  Company Number: DE-AVENTIS-200612177DE

PATIENT
  Age: 60 Year
  Sex: Female
  Weight: 84 kg

DRUGS (5)
  1. DOCETAXEL [Suspect]
     Indication: BREAST CANCER
     Route: 042
     Dates: start: 20060713, end: 20060713
  2. GEMCITABINE [Concomitant]
     Indication: BREAST CANCER
     Route: 042
     Dates: start: 20060713, end: 20060713
  3. GEMCITABINE [Concomitant]
     Route: 042
     Dates: start: 20060720, end: 20060720
  4. GRANISETRON  HCL [Concomitant]
     Indication: VOMITING
     Dates: start: 20060713, end: 20060713
  5. DEXAMETHASONE [Concomitant]
     Indication: VOMITING
     Dates: start: 20060713, end: 20060714

REACTIONS (6)
  - ASTHENIA [None]
  - DEPRESSION [None]
  - DYSSTASIA [None]
  - FATIGUE [None]
  - FEELING ABNORMAL [None]
  - NAUSEA [None]
